FAERS Safety Report 7948482-2 (Version None)
Quarter: 2011Q4

REPORT INFORMATION
  Report Type: 
  Country: None (occurrence: None)
  Receive Date: 20111130
  Receipt Date: 20111125
  Transmission Date: 20120403
  Serious: Yes (Hospitalization, Other)
  Sender: FDA-Public Use
  Company Number: JP-BAYER-200915203BYL

PATIENT
  Age: 60 Year
  Sex: Male
  Weight: 63 kg

DRUGS (5)
  1. LANSOPRAZOLE [Concomitant]
     Indication: GASTROOESOPHAGEAL REFLUX DISEASE
     Dosage: DAILY DOSE 30 MG
     Route: 048
  2. URSO 250 [Concomitant]
     Indication: CHRONIC HEPATITIS
     Dosage: DAILY DOSE 600 MG
     Route: 048
  3. NEXAVAR [Suspect]
     Dosage: DAILY DOSE 400 MG
     Route: 048
     Dates: start: 20091126, end: 20101120
  4. NEXAVAR [Suspect]
     Indication: HEPATIC NEOPLASM MALIGNANT
     Dosage: 200 MG, BID
     Route: 048
     Dates: start: 20091013, end: 20091124
  5. MAGMITT [Concomitant]
     Indication: CONSTIPATION
     Dosage: DAILY DOSE 2 G
     Route: 048

REACTIONS (5)
  - GASTROINTESTINAL HAEMORRHAGE [None]
  - MELAENA [None]
  - SHOCK HAEMORRHAGIC [None]
  - DIARRHOEA [None]
  - HYPERTENSION [None]
